FAERS Safety Report 19149151 (Version 3)
Quarter: 2021Q4

REPORT INFORMATION
  Report Type: Report from Study
  Country: US (occurrence: US)
  Receive Date: 20210416
  Receipt Date: 20211112
  Transmission Date: 20220303
  Serious: Yes (Life-Threatening, Hospitalization, Other)
  Sender: FDA-Public Use
  Company Number: US-EXELIXIS-XL18421039403

PATIENT
  Sex: Male
  Weight: 96.8 kg

DRUGS (8)
  1. PLACEBO [Suspect]
     Active Substance: UNSPECIFIED INGREDIENT
     Indication: Carcinoid tumour
     Dosage: 60 MG, QD
     Route: 048
     Dates: start: 20201120
  2. CABOZANTINIB [Suspect]
     Active Substance: CABOZANTINIB
     Indication: Carcinoid tumour
     Dosage: 60 MG, QD
     Route: 048
     Dates: start: 20201120
  3. PLACEBO [Suspect]
     Active Substance: UNSPECIFIED INGREDIENT
     Dosage: 40 MG, QD
     Route: 048
     Dates: start: 20201229, end: 20210401
  4. CABOZANTINIB [Suspect]
     Active Substance: CABOZANTINIB
     Dosage: 40 MG, QD
     Route: 048
     Dates: start: 20201229, end: 20210401
  5. HYDROCHLOROTHIAZIDE [Suspect]
     Active Substance: HYDROCHLOROTHIAZIDE
     Indication: Product used for unknown indication
     Dosage: UNK
  6. LANREOTIDE [Concomitant]
     Active Substance: LANREOTIDE
  7. VITAMINS [Concomitant]
     Active Substance: VITAMINS
  8. OMEGA-3 FATTY ACIDS [Concomitant]
     Active Substance: OMEGA-3 FATTY ACIDS

REACTIONS (5)
  - Cardiac arrest [Recovered/Resolved]
  - Torsade de pointes [Recovered/Resolved]
  - Ejection fraction decreased [Recovering/Resolving]
  - Acute myocardial infarction [Recovering/Resolving]
  - Coronary artery occlusion [Recovered/Resolved]

NARRATIVE: CASE EVENT DATE: 20210402
